FAERS Safety Report 15392715 (Version 1)
Quarter: 2018Q3

REPORT INFORMATION
  Report Type: Spontaneous
  Country: IT (occurrence: IT)
  Receive Date: 20180917
  Receipt Date: 20180917
  Transmission Date: 20181010
  Serious: Yes (Hospitalization)
  Sender: FDA-Public Use
  Company Number: IT-TEVA-2018-IT-955295

PATIENT
  Age: 65 Year
  Sex: Female

DRUGS (11)
  1. LEVOFLOXACIN KABI 5 MG / ML [Suspect]
     Active Substance: LEVOFLOXACIN
     Indication: ENTEROBACTER TEST POSITIVE
     Dosage: 750 MILLIGRAM DAILY;
     Route: 042
     Dates: start: 20130301, end: 20130326
  2. TRAMADOLO CLORIDRATO [Concomitant]
     Active Substance: TRAMADOL
     Dates: start: 20130306, end: 20130324
  3. OMEPRAZOLO [Concomitant]
     Active Substance: OMEPRAZOLE
     Dates: start: 20130306, end: 20130324
  4. LYRICA [Concomitant]
     Active Substance: PREGABALIN
     Route: 048
     Dates: start: 20130306, end: 20130326
  5. PANTORC [Concomitant]
     Active Substance: PANTOPRAZOLE SODIUM
     Dates: start: 20130325
  6. RIFADIN [Suspect]
     Active Substance: RIFAMPIN
     Indication: ENTEROBACTER TEST POSITIVE
     Dosage: 1200 MILLIGRAM DAILY;
     Route: 042
     Dates: start: 20130301, end: 20130327
  7. TACHIPIRINA [Concomitant]
     Active Substance: ACETAMINOPHEN
     Dates: start: 20130325
  8. VANCOMYCIN [Suspect]
     Active Substance: VANCOMYCIN
     Indication: ENTEROBACTER TEST POSITIVE
     Dosage: 2 GRAM DAILY;
     Route: 042
     Dates: start: 20130301, end: 20130326
  9. LYRICA [Concomitant]
     Active Substance: PREGABALIN
     Route: 048
     Dates: start: 20130306, end: 20130324
  10. ENOXAPARINA [Concomitant]
     Active Substance: ENOXAPARIN
     Dates: start: 20130306, end: 20130324
  11. LEDERFOLIN [Concomitant]
     Active Substance: LEUCOVORIN CALCIUM
     Dates: start: 20130325

REACTIONS (4)
  - Urticaria [Recovering/Resolving]
  - Drug interaction [Recovering/Resolving]
  - Laryngeal oedema [Recovering/Resolving]
  - Erythema multiforme [Recovering/Resolving]

NARRATIVE: CASE EVENT DATE: 20130326
